FAERS Safety Report 9088462 (Version 5)
Quarter: 2015Q3

REPORT INFORMATION
  Report Type: Spontaneous
  Country: US (occurrence: US)
  Receive Date: 20130131
  Receipt Date: 20150706
  Transmission Date: 20151125
  Serious: Yes (Hospitalization, Other)
  Sender: FDA-Public Use
  Company Number: US-009507513-1301USA014071

PATIENT
  Sex: Female
  Weight: 58.5 kg

DRUGS (3)
  1. ACTONEL [Suspect]
     Active Substance: RISEDRONATE SODIUM
     Indication: OSTEOPOROSIS
     Dosage: UNK
     Dates: start: 2001, end: 201003
  2. FOSAMAX [Suspect]
     Active Substance: ALENDRONATE SODIUM
     Indication: OSTEOPOROSIS
     Dosage: 70 MG, UNK
     Route: 048
     Dates: start: 20010816, end: 2006
  3. ALENDRONATE SODIUM. [Suspect]
     Active Substance: ALENDRONATE SODIUM
     Dosage: UNK
     Route: 048
     Dates: start: 2001, end: 2011

REACTIONS (37)
  - Fall [Unknown]
  - Limb injury [Unknown]
  - Drug hypersensitivity [Unknown]
  - Head injury [Recovered/Resolved]
  - Headache [Recovered/Resolved]
  - Intramedullary rod insertion [Unknown]
  - Femur fracture [Recovered/Resolved with Sequelae]
  - Senile osteoporosis [Unknown]
  - Hypertension [Unknown]
  - Kyphoscoliosis [Unknown]
  - Rib fracture [Unknown]
  - Transfusion [Unknown]
  - Deep vein thrombosis [Unknown]
  - Confusional state [Unknown]
  - Spinal compression fracture [Unknown]
  - Spinal fracture [Unknown]
  - Ligament sprain [Unknown]
  - Spondylolisthesis [Unknown]
  - Intervertebral disc disorder [Unknown]
  - Device failure [Unknown]
  - Scoliosis [Unknown]
  - Gastritis [Unknown]
  - Hypercholesterolaemia [Unknown]
  - Spinal osteoarthritis [Unknown]
  - Pain in extremity [Unknown]
  - Cartilage injury [Unknown]
  - Carcinoma in situ of skin [Recovered/Resolved]
  - Deep vein thrombosis [Unknown]
  - Migraine [Unknown]
  - Vascular calcification [Unknown]
  - Pain in extremity [Recovered/Resolved]
  - Musculoskeletal discomfort [Unknown]
  - Spinal osteoarthritis [Unknown]
  - Neuritis [Unknown]
  - Spinal deformity [Not Recovered/Not Resolved]
  - Osteopenia [Unknown]
  - Intervertebral disc degeneration [Unknown]

NARRATIVE: CASE EVENT DATE: 20050720
